FAERS Safety Report 12371900 (Version 1)
Quarter: 2016Q2

REPORT INFORMATION
  Report Type: Report from Study
  Country: RU (occurrence: RU)
  Receive Date: 20160516
  Receipt Date: 20160516
  Transmission Date: 20160815
  Serious: Yes (Hospitalization, Other)
  Sender: FDA-Public Use
  Company Number: RU-GLAXOSMITHKLINE-RU2016007853

PATIENT
  Age: 51 Year
  Sex: Male
  Weight: 62.2 kg

DRUGS (4)
  1. KETONAL (NOS) [Concomitant]
     Indication: BLADDER NEOPLASM
  2. MEPOLIZUMAB [Suspect]
     Active Substance: MEPOLIZUMAB
     Indication: ASTHMA
     Dosage: 100 MG, CYC
     Route: 058
     Dates: start: 20130220
  3. FOSFOMYCIN DISODIUM [Concomitant]
     Indication: BLADDER NEOPLASM
  4. FOKUSIN [Concomitant]
     Active Substance: TAMSULOSIN
     Indication: BLADDER NEOPLASM

REACTIONS (1)
  - Bladder papilloma [Recovered/Resolved]

NARRATIVE: CASE EVENT DATE: 20160111
